FAERS Safety Report 9387555 (Version 2)
Quarter: 2013Q3

REPORT INFORMATION
  Report Type: Spontaneous
  Country: US (occurrence: US)
  Receive Date: 20130708
  Receipt Date: 20130726
  Transmission Date: 20140515
  Serious: No
  Sender: FDA-Public Use
  Company Number: US-ASTRAZENECA-2013SE46834

PATIENT
  Age: 72 Year
  Sex: Male
  Weight: 99.8 kg

DRUGS (4)
  1. TENORMIN [Suspect]
     Indication: MITRAL VALVE PROLAPSE
     Route: 048
  2. TENORMIN [Suspect]
     Indication: MITRAL VALVE PROLAPSE
     Dosage: HALF TABLET IN ADDITION TO DAILY DOSE AS NEEDED
     Route: 048
  3. INDERAL [Suspect]
     Route: 065
  4. LAMICTAL [Concomitant]
     Indication: LIMB DISCOMFORT
     Dosage: LOWEST DAILY
     Route: 048

REACTIONS (4)
  - Heart rate increased [Unknown]
  - Off label use [Unknown]
  - Off label use [Unknown]
  - Drug ineffective [Unknown]
